FAERS Safety Report 18671208 (Version 1)
Quarter: 2020Q4

REPORT INFORMATION
  Report Type: Spontaneous
  Country: BE (occurrence: BE)
  Receive Date: 20201228
  Receipt Date: 20201228
  Transmission Date: 20210114
  Serious: Yes (Death, Other)
  Sender: FDA-Public Use
  Company Number: BE-PFIZER INC-2020507526

PATIENT
  Age: 39 Year
  Sex: Female

DRUGS (7)
  1. METHYLPREDNISOLONE SODIUM SUCCINATE. [Suspect]
     Active Substance: METHYLPREDNISOLONE SODIUM SUCCINATE
     Dosage: 2 MG/KG, DAILY
     Route: 042
  2. ATEZOLIZUMAB. [Suspect]
     Active Substance: ATEZOLIZUMAB
     Indication: METASTASES TO LUNG
  3. BEVACIZUMAB. [Suspect]
     Active Substance: BEVACIZUMAB
     Indication: HEPATOCELLULAR CARCINOMA
  4. INFLIXIMAB [Suspect]
     Active Substance: INFLIXIMAB
     Dosage: 10 MG/KG
     Route: 065
  5. BEVACIZUMAB. [Suspect]
     Active Substance: BEVACIZUMAB
     Indication: METASTASES TO LUNG
     Dosage: UNK
     Route: 065
  6. METHYLPREDNISOLONE SODIUM SUCCINATE. [Suspect]
     Active Substance: METHYLPREDNISOLONE SODIUM SUCCINATE
     Dosage: 1 G, 1X/DAY
     Route: 042
  7. ATEZOLIZUMAB. [Suspect]
     Active Substance: ATEZOLIZUMAB
     Indication: HEPATOCELLULAR CARCINOMA
     Dosage: UNK
     Route: 065

REACTIONS (6)
  - Death [Fatal]
  - Hepatic failure [Unknown]
  - Coma scale abnormal [Unknown]
  - Immune-mediated hepatitis [Unknown]
  - Hepatic haemorrhage [Unknown]
  - Status epilepticus [Unknown]
